FAERS Safety Report 12449133 (Version 2)
Quarter: 2020Q2

REPORT INFORMATION
  Report Type: Spontaneous
  Country: US (occurrence: US)
  Receive Date: 20160608
  Receipt Date: 20200608
  Transmission Date: 20200713
  Serious: Yes (Death, Hospitalization, Other)
  Sender: FDA-Public Use
  Company Number: US-009507513-1606USA003838

PATIENT
  Sex: Female
  Weight: 63.49 kg

DRUGS (3)
  1. DILAUDID [Suspect]
     Active Substance: HYDROMORPHONE HYDROCHLORIDE
     Dosage: UNK
  2. JANUMET [Suspect]
     Active Substance: METFORMIN HYDROCHLORIDE\SITAGLIPTIN PHOSPHATE
     Dosage: 1000 MG TABLETS, DAILY AS PRESCRIBED
     Route: 048
     Dates: start: 2011, end: 2013
  3. LEVAQUIN [Suspect]
     Active Substance: LEVOFLOXACIN
     Dosage: UNK

REACTIONS (19)
  - Respiratory failure [Unknown]
  - Enteritis [Unknown]
  - Gastrointestinal wall thickening [Unknown]
  - Road traffic accident [Unknown]
  - Thrombocytopenia [Unknown]
  - Pancreatitis [Recovering/Resolving]
  - Drug hypersensitivity [Unknown]
  - Pancytopenia [Unknown]
  - Metastases to liver [Unknown]
  - Chronic kidney disease [Unknown]
  - Normochromic normocytic anaemia [Unknown]
  - Back pain [Unknown]
  - Dehydration [Unknown]
  - Tumour invasion [Unknown]
  - Pneumonia [Unknown]
  - Anxiety [Unknown]
  - Pancreatic carcinoma metastatic [Fatal]
  - Mesenteric venous occlusion [Unknown]
  - Drug ineffective [Unknown]

NARRATIVE: CASE EVENT DATE: 201305
